FAERS Safety Report 5195266-7 (Version None)
Quarter: 2006Q4

REPORT INFORMATION
  Report Type: 
  Country: None (occurrence: None)
  Receive Date: 20061229
  Receipt Date: 20061122
  Transmission Date: 20070319
  Serious: Yes (Other)
  Sender: FDA-Public Use
  Company Number: US-PFIZER INC-2006145271

PATIENT
  Sex: Female

DRUGS (2)
  1. DEPO-PROVERA [Suspect]
     Dosage: FREQ:FIRST INJECTION
     Route: 030
     Dates: start: 20010101, end: 20010101
  2. DEPO-PROVERA [Suspect]
     Dosage: FREQ:LAST INJECTION
     Route: 030
     Dates: start: 20050601, end: 20050601

REACTIONS (2)
  - HIP FRACTURE [None]
  - OSTEOPOROSIS [None]
